FAERS Safety Report 4568585-2 (Version None)
Quarter: 2005Q1

REPORT INFORMATION
  Report Type: 
  Country: None (occurrence: None)
  Receive Date: 20050202
  Receipt Date: 20050125
  Transmission Date: 20050727
  Serious: Yes (Other)
  Sender: FDA-Public Use
  Company Number: US-ABBOTT-05P-163-0288137-00

PATIENT
  Age: 40 Year
  Sex: Female

DRUGS (5)
  1. NORVIR [Suspect]
     Indication: HIV INFECTION
     Dosage: TAKING AT CONCEPTION
     Route: 048
     Dates: start: 20040820
  2. EFAVIRENZ [Suspect]
     Indication: HIV INFECTION
     Dosage: NOT TAKING AT CONCEPTION
     Route: 048
     Dates: start: 20010515, end: 20040611
  3. LAMIVUDINE AND ZIDOVUDINE [Suspect]
     Indication: HIV INFECTION
     Dosage: 600/300, NOT TAKING AT CONCEPTION
     Route: 048
     Dates: start: 20010515
  4. TRIZIVIR [Suspect]
     Indication: HIV INFECTION
     Dosage: 600/300/600, TAKING AT CONCEPTION
     Route: 048
     Dates: start: 20040604
  5. FOSAMPRENAVIR CALCIUM [Suspect]
     Indication: HIV INFECTION
     Dosage: TAKING AT CONCEPTION
     Route: 048
     Dates: start: 20040820

REACTIONS (1)
  - ABORTION SPONTANEOUS [None]
